FAERS Safety Report 7500198-2 (Version None)
Quarter: 2011Q2

REPORT INFORMATION
  Report Type: 
  Country: None (occurrence: None)
  Receive Date: 20110524
  Receipt Date: 20100416
  Transmission Date: 20111010
  Serious: No
  Sender: FDA-Public Use
  Company Number: US-NOVEN-ALL1-2010-02288

PATIENT

DRUGS (5)
  1. DAYTRANA [Suspect]
     Dosage: 10 MG, 1X/DAY:QD
     Route: 062
     Dates: start: 20080101
  2. DAYTRANA [Suspect]
     Dosage: 20 MG, 1X/DAY:QD
     Route: 062
  3. DAYTRANA [Suspect]
     Dosage: 20 MG, 1X/DAY:QD
     Route: 062
  4. DAYTRANA [Suspect]
     Dosage: 1/2 OF A 30 MG PATCH
     Route: 062
  5. DAYTRANA [Suspect]
     Dosage: 15 MG, 1X/DAY:QD
     Route: 062

REACTIONS (7)
  - ANXIETY [None]
  - PRODUCT QUALITY ISSUE [None]
  - DECREASED APPETITE [None]
  - DRUG PRESCRIBING ERROR [None]
  - ACCIDENTAL EXPOSURE [None]
  - APPLICATION SITE ERYTHEMA [None]
  - WRONG TECHNIQUE IN DRUG USAGE PROCESS [None]
